FAERS Safety Report 15868242 (Version 1)
Quarter: 2019Q1

REPORT INFORMATION
  Report Type: Spontaneous
  Country: US (occurrence: US)
  Receive Date: 20190125
  Receipt Date: 20190125
  Transmission Date: 20190417
  Serious: Yes (Other)
  Sender: FDA-Public Use
  Company Number: None

PATIENT
  Sex: Female

DRUGS (1)
  1. AFINITOR [Suspect]
     Active Substance: EVEROLIMUS
     Indication: BREAST CANCER
     Route: 048

REACTIONS (11)
  - Pyrexia [None]
  - Hyperhidrosis [None]
  - Vaginal discharge [None]
  - Weight decreased [None]
  - Asthenia [None]
  - Endometrial disorder [None]
  - Vulvovaginal burning sensation [None]
  - Polyp [None]
  - Chills [None]
  - Nephrolithiasis [None]
  - Rectal fissure [None]
